FAERS Safety Report 8417551-5 (Version None)
Quarter: 2012Q2

REPORT INFORMATION
  Report Type: 
  Country: None (occurrence: None)
  Receive Date: 20120606
  Receipt Date: 20120525
  Transmission Date: 20120825
  Serious: Yes (Hospitalization)
  Sender: FDA-Public Use
  Company Number: US-ELI_LILLY_AND_COMPANY-US201109004923

PATIENT
  Sex: Male

DRUGS (3)
  1. FORTEO [Suspect]
     Dosage: 20 UG, UNKNOWN
     Route: 065
  2. FORTEO [Suspect]
     Indication: OSTEOPOROSIS
     Dosage: 20 UG, QD
  3. FORTEO [Suspect]
     Dosage: 20 U, QD
     Dates: start: 20120412

REACTIONS (7)
  - DYSPNOEA [None]
  - NASOPHARYNGITIS [None]
  - SINUS DISORDER [None]
  - ABASIA [None]
  - PNEUMONIA [None]
  - FOOT OPERATION [None]
  - MALAISE [None]
